FAERS Safety Report 9032904 (Version 1)
Quarter: 2013Q1

REPORT INFORMATION
  Report Type: Spontaneous
  Country: US (occurrence: US)
  Receive Date: 20130128
  Receipt Date: 20130128
  Transmission Date: 20140127
  Serious: No
  Sender: FDA-Public Use
  Company Number: US-BIOGENIDEC-2013BI005487

PATIENT
  Sex: Female

DRUGS (1)
  1. AVONEX [Suspect]
     Indication: MULTIPLE SCLEROSIS
     Route: 030
     Dates: start: 20100310

REACTIONS (3)
  - Migraine [Not Recovered/Not Resolved]
  - Injection site haemorrhage [Recovered/Resolved]
  - Pyrexia [Not Recovered/Not Resolved]
